FAERS Safety Report 11932337 (Version 2)
Quarter: 2016Q1

REPORT INFORMATION
  Report Type: Spontaneous
  Country: JP (occurrence: JP)
  Receive Date: 20160120
  Receipt Date: 20160120
  Transmission Date: 20160526
  Serious: Yes (Other)
  Sender: FDA-Public Use
  Company Number: JP-DSJP-DSJ-2015-136704

PATIENT

DRUGS (11)
  1. LIXIANA TABLETS 60MG [Suspect]
     Active Substance: EDOXABAN TOSILATE MONOHYDRATE
     Dosage: 60MG/DAY
     Route: 048
     Dates: start: 20151127, end: 20151201
  2. ACARBOSE. [Concomitant]
     Active Substance: ACARBOSE
     Dosage: 300MG/DAY
     Route: 048
  3. LIXIANA TABLETS 60MG [Suspect]
     Active Substance: EDOXABAN TOSILATE MONOHYDRATE
     Dosage: 60MG/DAY
     Route: 048
     Dates: start: 20151025, end: 20151123
  4. PRAZAXA [Concomitant]
     Active Substance: DABIGATRAN ETEXILATE MESYLATE
     Dosage: 220MG/DAY
     Route: 048
     Dates: start: 20130204, end: 20150615
  5. HEPARIN [Concomitant]
     Active Substance: HEPARIN SODIUM
     Dosage: 12000U/DAY
     Route: 041
     Dates: start: 20150615, end: 20150619
  6. BERAPROST NA [Concomitant]
     Active Substance: BERAPROST SODIUM
     Dosage: 60MG/DAY
     Route: 048
  7. KALLIDINOGENASE [Concomitant]
     Active Substance: KALLIDINOGENASE
     Dosage: 150MG/DAY
     Route: 048
  8. ZOLPIDEM [Concomitant]
     Active Substance: ZOLPIDEM\ZOLPIDEM TARTRATE
     Dosage: 5MG/DAY
     Route: 048
  9. NOVOLIN R [Concomitant]
     Active Substance: INSULIN HUMAN
     Dosage: UNK
     Route: 058
  10. LIXIANA TABLETS 60MG [Suspect]
     Active Substance: EDOXABAN TOSILATE MONOHYDRATE
     Indication: ATRIAL FIBRILLATION
     Dosage: 30MG/DAY
     Route: 048
     Dates: start: 20150620, end: 20151024
  11. BISOPROLOL [Concomitant]
     Active Substance: BISOPROLOL
     Dosage: 2.5MG/DAY
     Route: 048

REACTIONS (2)
  - Melaena [Recovered/Resolved]
  - Embolic stroke [Recovered/Resolved with Sequelae]

NARRATIVE: CASE EVENT DATE: 20151024
